FAERS Safety Report 26178776 (Version 1)
Quarter: 2025Q4

REPORT INFORMATION
  Report Type: Spontaneous
  Country: EU (occurrence: EU)
  Receive Date: 20251219
  Receipt Date: 20251219
  Transmission Date: 20260117
  Serious: Yes (Other)
  Sender: AUROBINDO
  Company Number: EU-AEMPS-1786759

PATIENT
  Age: 6 Month
  Sex: Male
  Weight: 7 kg

DRUGS (4)
  1. ENALAPRIL [Suspect]
     Active Substance: ENALAPRIL
     Indication: Product used for unknown indication
     Dosage: UNK (C/24 H)
     Route: 061
     Dates: start: 20251129, end: 20251130
  2. OMEPRAZOLE [Concomitant]
     Active Substance: OMEPRAZOLE
     Indication: Gastrooesophageal reflux disease
     Dosage: 7.6 MG C/24 H
     Route: 061
  3. VITAMIN D3 [Concomitant]
     Active Substance: CHOLECALCIFEROL
     Indication: Vitamin supplementation
     Dosage: 400.0 UI DE
     Route: 061
  4. SODIUM [Concomitant]
     Active Substance: SODIUM
     Indication: Nausea
     Dosage: 1.0 SOBRE C/24 H
     Route: 061

REACTIONS (3)
  - Decreased appetite [Recovered/Resolved]
  - Restlessness [Recovered/Resolved]
  - Product dispensing error [Recovered/Resolved]

NARRATIVE: CASE EVENT DATE: 20251130
